FAERS Safety Report 8860768 (Version 2)
Quarter: 2012Q4

REPORT INFORMATION
  Report Type: 
  Country: FI (occurrence: FI)
  Receive Date: 20121026
  Receipt Date: 20121031
  Transmission Date: 20130627
  Serious: Yes (Other)
  Sender: FDA-Public Use
  Company Number: FI-009507513-1210FIN009939

PATIENT
  Age: 59 Year
  Sex: Female

DRUGS (4)
  1. ALENDRONATE SODIUM [Suspect]
     Indication: OSTEOPOROSIS
     Dosage: 10mg qd or 70mg qw
     Route: 048
  2. DEXAMETHASONE [Suspect]
     Indication: MULTIPLE MYELOMA
     Dosage: 40 mg, qd
     Route: 048
  3. ZOLEDRONIC ACID [Suspect]
     Indication: MULTIPLE MYELOMA
     Dosage: 4 mg, qm
     Route: 042
  4. CLODRONATE DISODIUM [Concomitant]
     Indication: MULTIPLE MYELOMA
     Dosage: 1600 mg, qd

REACTIONS (1)
  - Osteonecrosis of jaw [Recovered/Resolved]
